FAERS Safety Report 5757458-5 (Version None)
Quarter: 2008Q2

REPORT INFORMATION
  Report Type: 
  Country: None (occurrence: None)
  Receive Date: 20080603
  Receipt Date: 20071128
  Transmission Date: 20081010
  Serious: No
  Sender: FDA-Public Use
  Company Number: US-BOEHRINGER INGELHEIM GMBH, GERMANY-2006-BP-14506BP

PATIENT
  Sex: Male
  Weight: 81 kg

DRUGS (30)
  1. MIRAPEX [Suspect]
     Indication: PARKINSON'S DISEASE
     Route: 048
     Dates: start: 20000404, end: 20060323
  2. SINEMET [Concomitant]
     Indication: PARKINSON'S DISEASE
  3. SELEGILIN STADA [Concomitant]
     Indication: PARKINSON'S DISEASE
     Dates: start: 20000324
  4. ARTANE [Concomitant]
     Indication: PARKINSON'S DISEASE
  5. MOBIC [Concomitant]
  6. COQ10 [Concomitant]
  7. PEPCID [Concomitant]
  8. CARBIDOPA [Concomitant]
     Indication: PARKINSON'S DISEASE
     Route: 048
     Dates: start: 20000501
  9. COLACE [Concomitant]
     Dates: start: 20001019
  10. ASPIRIN [Concomitant]
  11. LIPITOR [Concomitant]
  12. AZILECT RASIOGLINE [Concomitant]
  13. VOLTAREN [Concomitant]
     Indication: PAIN
  14. MOTRIN [Concomitant]
     Indication: PAIN
     Dates: start: 20020516
  15. NAPROXEN [Concomitant]
     Indication: PAIN
     Dates: start: 20020516
  16. CELEXA [Concomitant]
     Indication: DEPRESSION
     Dates: start: 20060707
  17. LEXAPRO [Concomitant]
     Indication: DEPRESSION
     Dates: start: 20060907
  18. BEXTRA [Concomitant]
     Indication: MUSCULOSKELETAL PAIN
     Dates: start: 20030101
  19. KENALOG [Concomitant]
     Indication: MUSCULOSKELETAL PAIN
     Dates: start: 20020823
  20. SALSALATE [Concomitant]
     Indication: PAIN
     Dates: start: 20020517
  21. ELDEPRYL [Concomitant]
     Indication: PARKINSON'S DISEASE
     Dates: start: 20000405
  22. SARIOSINE [Concomitant]
     Indication: PAIN
     Dates: start: 20040101
  23. CYCLOPENTAMINE [Concomitant]
     Indication: PAIN
     Dates: start: 20040101
  24. CIALIS [Concomitant]
     Dates: start: 20040101
  25. PLAVIX [Concomitant]
     Indication: PROPHYLAXIS
     Dates: start: 20061019
  26. NITROGLYCERIN [Concomitant]
     Indication: CHEST PAIN
     Dates: start: 20061024
  27. FLOMAX [Concomitant]
     Indication: BENIGN PROSTATIC HYPERPLASIA
  28. ZETIA [Concomitant]
     Indication: BLOOD CHOLESTEROL INCREASED
  29. MYSOLINE [Concomitant]
  30. LEVITRA [Concomitant]
     Dates: start: 20050101

REACTIONS (4)
  - DEPRESSION [None]
  - HYPERSEXUALITY [None]
  - OBSESSIVE-COMPULSIVE DISORDER [None]
  - PATHOLOGICAL GAMBLING [None]
